FAERS Safety Report 24199104 (Version 1)
Quarter: 2024Q3

REPORT INFORMATION
  Report Type: Spontaneous
  Country: IT (occurrence: IT)
  Receive Date: 20240812
  Receipt Date: 20240812
  Transmission Date: 20241016
  Serious: Yes (Other)
  Sender: SANOFI AVENTIS
  Company Number: None

PATIENT
  Age: 97 Year
  Sex: Female

DRUGS (14)
  1. PLAVIX [Suspect]
     Active Substance: CLOPIDOGREL BISULFATE
     Dosage: 75 MG AT AT 12:00
     Route: 048
  2. INCRUSE ELLIPTA [Concomitant]
     Active Substance: UMECLIDINIUM BROMIDE
     Dosage: UNK, INCRUSE 55 1 PUFF
  3. CLODRON [Concomitant]
     Dosage: UNK UNK, Q15D
  4. AMLODIPINE [Concomitant]
     Active Substance: AMLODIPINE BESYLATE
     Dosage: 5 MG, 1 TAB AT 19:00
  5. CALCIUM CARBONATE [Concomitant]
     Active Substance: CALCIUM CARBONATE
     Dosage: UNK
  6. OMEPRAZOLE [Concomitant]
     Active Substance: OMEPRAZOLE
     Dosage: 20 MG 1 TAB AT 08:00
  7. CHOLECALCIFEROL [Concomitant]
     Active Substance: CHOLECALCIFEROL
     Dosage: UNK, 30 DROPS WEDNESDAYS
  8. LASIX [Concomitant]
     Active Substance: FUROSEMIDE
     Dosage: 25 MG,  TAB AT 08:00 AND 2 TABS AT 16:00
  9. HUMALOG [Concomitant]
     Active Substance: INSULIN LISPRO
     Dosage: 8 U, LUNCHTIME
  10. HUMALOG [Concomitant]
     Active Substance: INSULIN LISPRO
     Dosage: 6 U, DINNERTIME
  11. FLUTICASONE FUROATE\VILANTEROL TRIFENATATE [Concomitant]
     Active Substance: FLUTICASONE FUROATE\VILANTEROL TRIFENATATE
     Dosage: UNK, 92/22 1 PUFF IN THE MORNING
  12. CLARITHROMYCIN [Concomitant]
     Active Substance: CLARITHROMYCIN
     Dosage: UNK, 500X2
  13. VALSARTAN [Concomitant]
     Active Substance: VALSARTAN
     Dosage: 80 MG, 1 TAB AT 08:00
  14. LANTUS [Concomitant]
     Active Substance: INSULIN GLARGINE
     Dosage: UNK, LANTUS 4-6 U AFTER CHECKING WITH GLUCOSE TEST STRIP

REACTIONS (1)
  - Microcytic anaemia [Unknown]

NARRATIVE: CASE EVENT DATE: 20240724
